FAERS Safety Report 21187037 (Version 1)
Quarter: 2022Q3

REPORT INFORMATION
  Report Type: Spontaneous
  Country: US (occurrence: US)
  Receive Date: 20220808
  Receipt Date: 20220808
  Transmission Date: 20221026
  Serious: No
  Sender: FDA-Public Use
  Company Number: US-SUNOVION-2022SUN002375

PATIENT
  Age: 16 Year
  Sex: Female

DRUGS (1)
  1. LATUDA [Suspect]
     Active Substance: LURASIDONE HYDROCHLORIDE
     Dosage: 10 MG (HALF OF 20MG)
     Route: 048

REACTIONS (4)
  - Anxiety [Unknown]
  - Wrong technique in product usage process [Unknown]
  - Off label use [Unknown]
  - Prescribed underdose [Unknown]
